FAERS Safety Report 11058793 (Version 1)
Quarter: 2015Q2

REPORT INFORMATION
  Report Type: Report from Study
  Country: US (occurrence: None)
  Receive Date: 20150422
  Receipt Date: 20150422
  Transmission Date: 20150821
  Serious: Yes (Hospitalization, Other)
  Sender: FDA-Public Use
  Company Number: US-2015CRT000359

PATIENT
  Age: 42 Year
  Sex: Female
  Weight: 131.5 kg

DRUGS (1)
  1. KORLYM [Suspect]
     Active Substance: MIFEPRISTONE
     Indication: CUSHING^S SYNDROME
     Route: 048
     Dates: start: 201309

REACTIONS (3)
  - Impaired healing [None]
  - Gallbladder operation [None]
  - Surgery [None]

NARRATIVE: CASE EVENT DATE: 20141229
